FAERS Safety Report 21147815 (Version 1)
Quarter: 2022Q3

REPORT INFORMATION
  Report Type: Spontaneous
  Country: US (occurrence: US)
  Receive Date: 20220729
  Receipt Date: 20220729
  Transmission Date: 20221027
  Serious: Yes (Other)
  Sender: FDA-Public Use
  Company Number: US-BRISTOL-MYERS SQUIBB COMPANY-2022-079472

PATIENT
  Age: 52 Year
  Sex: Male
  Weight: 92.53 kg

DRUGS (19)
  1. REVLIMID [Suspect]
     Active Substance: LENALIDOMIDE
     Indication: Plasma cell myeloma
     Route: 048
     Dates: start: 20220303
  2. REVLIMID [Suspect]
     Active Substance: LENALIDOMIDE
     Route: 048
  3. CALCIUM CARBONATE [Concomitant]
     Active Substance: CALCIUM CARBONATE
     Dosage: 500+D3 TABLETS
  4. VITAMINS [Concomitant]
     Active Substance: VITAMINS
  5. HYDROMORPHONE HYDROCHLORIDE [Concomitant]
     Active Substance: HYDROMORPHONE HYDROCHLORIDE
     Dosage: 4 MG/ML?1 ML
  6. ACYCLOVIR [Concomitant]
     Active Substance: ACYCLOVIR
  7. AVEED [Concomitant]
     Active Substance: TESTOSTERONE UNDECANOATE
     Dosage: 750 MG/3 ML, 3 ML
  8. VITAMIN B-COMPLEX, PLAIN [Concomitant]
  9. CHORIONIC GONADOTR [Concomitant]
     Dosage: 1000 UNIT?1 VIAL
  10. CIALIS [Concomitant]
     Active Substance: TADALAFIL
  11. FISH OIL [Concomitant]
     Active Substance: FISH OIL
  12. GABAPENTIN [Concomitant]
     Active Substance: GABAPENTIN
  13. GARLIC FORTE [Concomitant]
  14. MAGNESIUM [MAGNESIUM MALATE] [Concomitant]
     Dosage: SOFTGEL
  15. OMEPRAZOLE [Concomitant]
     Active Substance: OMEPRAZOLE
  16. ONDANSETRON [Concomitant]
     Active Substance: ONDANSETRON
  17. POTASSIUM K 20 [Concomitant]
  18. VENLAFAXINE [Concomitant]
     Active Substance: VENLAFAXINE HYDROCHLORIDE
  19. VITAMIN C [Concomitant]
     Active Substance: ASCORBIC ACID

REACTIONS (7)
  - Diarrhoea [Unknown]
  - Testicular disorder [Unknown]
  - Neuropathy peripheral [Unknown]
  - Nausea [Not Recovered/Not Resolved]
  - Bone pain [Not Recovered/Not Resolved]
  - Arthralgia [Not Recovered/Not Resolved]
  - Tinnitus [Not Recovered/Not Resolved]
